FAERS Safety Report 22182967 (Version 3)
Quarter: 2023Q2

REPORT INFORMATION
  Report Type: Spontaneous
  Country: US (occurrence: US)
  Receive Date: 20230406
  Receipt Date: 20230601
  Transmission Date: 20230722
  Serious: No
  Sender: FDA-Public Use
  Company Number: US-ALLERGAN-2302436US

PATIENT
  Age: 56 Year
  Sex: Male
  Weight: 111.11 kg

DRUGS (1)
  1. QULIPTA [Suspect]
     Active Substance: ATOGEPANT
     Indication: Migraine
     Dosage: 60 MG, QD
     Route: 048
     Dates: start: 202212, end: 202212

REACTIONS (3)
  - Abdominal distension [Unknown]
  - Gastrointestinal motility disorder [Unknown]
  - Constipation [Unknown]

NARRATIVE: CASE EVENT DATE: 20221201
